FAERS Safety Report 16073520 (Version 1)
Quarter: 2019Q1

REPORT INFORMATION
  Report Type: Spontaneous
  Country: JP (occurrence: JP)
  Receive Date: 20190314
  Receipt Date: 20190314
  Transmission Date: 20190418
  Serious: Yes (Other)
  Sender: FDA-Public Use
  Company Number: JP-PFIZER INC-2019107582

PATIENT

DRUGS (1)
  1. SELARA 50MG [Suspect]
     Active Substance: EPLERENONE
     Dosage: 50 MG, 2X/DAY

REACTIONS (2)
  - Bradycardia [Recovering/Resolving]
  - Hyperkalaemia [Recovering/Resolving]
